FAERS Safety Report 21417684 (Version 1)
Quarter: 2022Q4

REPORT INFORMATION
  Report Type: Spontaneous
  Country: DE (occurrence: DE)
  Receive Date: 20221006
  Receipt Date: 20221006
  Transmission Date: 20230113
  Serious: Yes (Hospitalization, Other)
  Sender: FDA-Public Use
  Company Number: DE-ADRED-08244-01

PATIENT
  Age: 66 Year
  Sex: Female
  Weight: 72 kg

DRUGS (3)
  1. HYDROXYUREA [Suspect]
     Active Substance: HYDROXYUREA
     Indication: Product used for unknown indication
     Route: 065
  2. AZATHIOPRINE [Suspect]
     Active Substance: AZATHIOPRINE
     Indication: Product used for unknown indication
     Route: 065
  3. IRBESARTAN [Concomitant]
     Active Substance: IRBESARTAN
     Indication: Product used for unknown indication
     Route: 065

REACTIONS (10)
  - Tachycardia [Unknown]
  - Leukopenia [Unknown]
  - Pyrexia [Unknown]
  - General physical health deterioration [Unknown]
  - Tachypnoea [Unknown]
  - Renal impairment [Unknown]
  - Depressed level of consciousness [Unknown]
  - Confusional state [Unknown]
  - Systemic infection [Unknown]
  - Cough [Unknown]
